FAERS Safety Report 19505821 (Version 1)
Quarter: 2021Q3

REPORT INFORMATION
  Report Type: Spontaneous
  Country: SY (occurrence: SY)
  Receive Date: 20210708
  Receipt Date: 20210708
  Transmission Date: 20211014
  Serious: Yes (Hospitalization, Other)
  Sender: FDA-Public Use
  Company Number: SY-ASTELLAS-2021US025024

PATIENT
  Age: 9 Year
  Sex: Male

DRUGS (1)
  1. TACROLIMUS SYSTEMIC [Suspect]
     Active Substance: TACROLIMUS
     Indication: LIVER TRANSPLANT
     Dosage: UNK UNK, UNKNOWN FREQ.
     Route: 065

REACTIONS (6)
  - Pneumonia [Unknown]
  - Acute respiratory distress syndrome [Unknown]
  - Staphylococcal infection [Unknown]
  - Immunosuppressant drug level increased [Unknown]
  - Pseudomonas infection [Unknown]
  - Abdominal infection [Unknown]
